FAERS Safety Report 5860843-4 (Version None)
Quarter: 2008Q3

REPORT INFORMATION
  Report Type: 
  Country: None (occurrence: None)
  Receive Date: 20080827
  Receipt Date: 20071214
  Transmission Date: 20090109
  Serious: No
  Sender: FDA-Public Use
  Company Number: US-ABBOTT-07P-163-0428191-00

PATIENT
  Sex: Male
  Weight: 90.8 kg

DRUGS (8)
  1. COATED PDS [Suspect]
     Indication: LIPOPROTEIN (A) ABNORMAL
     Route: 048
     Dates: start: 20071105, end: 20071107
  2. COATED PDS [Suspect]
     Route: 048
     Dates: start: 20071108, end: 20071110
  3. COATED PDS [Suspect]
     Route: 048
     Dates: start: 20071128
  4. FOLIC ACID [Concomitant]
     Indication: DRUG USE FOR UNKNOWN INDICATION
  5. MESALAMINE [Concomitant]
     Indication: CROHN'S DISEASE
  6. INSULIN [Concomitant]
     Indication: DIABETES MELLITUS
  7. METFORMIN HCL [Concomitant]
     Indication: DIABETES MELLITUS
  8. ACETYLSALICYLIC ACID SRT [Concomitant]
     Indication: DRUG USE FOR UNKNOWN INDICATION

REACTIONS (3)
  - FLUSHING [None]
  - HYPERHIDROSIS [None]
  - PRURITUS [None]
